FAERS Safety Report 13665167 (Version 1)
Quarter: 2017Q2

REPORT INFORMATION
  Report Type: Spontaneous
  Country: US (occurrence: US)
  Receive Date: 20170619
  Receipt Date: 20170619
  Transmission Date: 20170830
  Serious: Yes (Life-Threatening, Hospitalization)
  Sender: FDA-Public Use
  Company Number: None

PATIENT
  Age: 6 Year
  Sex: Female
  Weight: 27.45 kg

DRUGS (5)
  1. CYCLOSPORIN [Concomitant]
     Active Substance: CYCLOSPORINE
  2. NEUPOGEN [Concomitant]
     Active Substance: FILGRASTIM
  3. PENTAMIDINE [Concomitant]
     Active Substance: PENTAMIDINE
  4. CEPHALEXIN 250 MG/5ML ORAL SUSPE [Suspect]
     Active Substance: CEPHALEXIN
     Indication: PHARYNGITIS STREPTOCOCCAL
     Route: 048
     Dates: start: 20170128, end: 20170207
  5. MAGNESIUM SUPPLEMENT [Concomitant]

REACTIONS (2)
  - Contusion [None]
  - Aplastic anaemia [None]

NARRATIVE: CASE EVENT DATE: 20170217
